FAERS Safety Report 21640430 (Version 3)
Quarter: 2023Q1

REPORT INFORMATION
  Report Type: Report from Study
  Country: US (occurrence: US)
  Receive Date: 20221124
  Receipt Date: 20230220
  Transmission Date: 20230417
  Serious: No
  Sender: FDA-Public Use
  Company Number: US-ABBVIE-22K-163-4525488-00

PATIENT
  Sex: Female

DRUGS (1)
  1. RINVOQ [Suspect]
     Active Substance: UPADACITINIB
     Indication: Rheumatoid arthritis
     Dosage: TIME INTERVAL: 1 TOTAL: 15 MG DAILY?FIRST ADMIN DATE- 10 AUG 2022
     Route: 048
     Dates: start: 20220810

REACTIONS (23)
  - Peripheral swelling [Recovered/Resolved]
  - Gastric disorder [Unknown]
  - Joint swelling [Recovered/Resolved]
  - Abdominal discomfort [Unknown]
  - Musculoskeletal stiffness [Unknown]
  - Pain [Unknown]
  - Vision blurred [Unknown]
  - Dyspnoea [Unknown]
  - Joint swelling [Unknown]
  - Dry eye [Unknown]
  - Toothache [Unknown]
  - Skin laceration [Unknown]
  - Rhinorrhoea [Unknown]
  - Back pain [Not Recovered/Not Resolved]
  - Impaired healing [Unknown]
  - Peripheral swelling [Unknown]
  - Arthralgia [Unknown]
  - Back injury [Unknown]
  - Hyperhidrosis [Unknown]
  - Headache [Unknown]
  - Back pain [Unknown]
  - Contusion [Unknown]
  - Fall [Unknown]

NARRATIVE: CASE EVENT DATE: 20220101
